FAERS Safety Report 7706959-9 (Version None)
Quarter: 2011Q3

REPORT INFORMATION
  Report Type: 
  Country: None (occurrence: None)
  Receive Date: 20110824
  Receipt Date: 20110819
  Transmission Date: 20111222
  Serious: Yes (Other)
  Sender: FDA-Public Use
  Company Number: BR-PFIZER INC-2011171122

PATIENT
  Age: 65 Year
  Sex: Female
  Weight: 67 kg

DRUGS (11)
  1. CALCIUM [Concomitant]
     Indication: OSTEOARTHRITIS
  2. VARENICLINE TARTRATE [Suspect]
     Indication: SMOKING CESSATION THERAPY
     Dosage: 0.5 MG, 1X/DAY
     Route: 048
     Dates: start: 20110726
  3. CALCIUM [Concomitant]
     Indication: OSTEOPOROSIS
  4. LOSARTAN [Concomitant]
     Indication: HYPERTENSION
     Dosage: UNK, 2X/DAY
  5. ARTROLIVE [Concomitant]
     Indication: OSTEOARTHRITIS
     Dosage: 1 CAPSULE THREE TIMES A DAY
     Dates: start: 20110101
  6. CALCIUM [Concomitant]
     Indication: OSTEOPATHIC TREATMENT
     Dosage: THREE TIMES A DAY
     Route: 048
     Dates: start: 20110601
  7. SIMVASTATIN [Concomitant]
     Indication: BLOOD CHOLESTEROL INCREASED
     Dosage: 20 MG, 1X/DAY
     Route: 048
  8. HYDROCHLOROTHIAZIDE [Concomitant]
     Indication: HYPERTENSION
     Dosage: 5 MG (HALF TABLET F 10 MG), 1X/DAY
     Route: 048
  9. PANTOGAR [Concomitant]
     Indication: ALOPECIA
     Dosage: UNK
  10. ARTROLIVE [Concomitant]
     Indication: OSTEOPOROSIS
  11. LEXOTAN [Concomitant]
     Indication: AGITATION
     Dosage: 1.5MG (HALF TABLET OF 3 MG), AT NIGHT

REACTIONS (2)
  - DEPRESSION [None]
  - BLOOD PRESSURE DECREASED [None]
